FAERS Safety Report 6940206-0 (Version None)
Quarter: 2010Q3

REPORT INFORMATION
  Report Type: 
  Country: None (occurrence: None)
  Receive Date: 20100825
  Receipt Date: 20100817
  Transmission Date: 20110219
  Serious: Yes (Hospitalization)
  Sender: FDA-Public Use
  Company Number: SE-SANOFI-AVENTIS-2009SA005910

PATIENT
  Age: 1 Day
  Sex: Male

DRUGS (9)
  1. STILNOCT [Suspect]
     Indication: DEPRESSION
     Dosage: EXPOSURE THROUGHOUT THE WHOLE PREGNANCY.
     Route: 064
     Dates: end: 20090904
  2. STILNOCT [Suspect]
     Indication: PANIC DISORDER
     Dosage: EXPOSURE THROUGHOUT THE WHOLE PREGNANCY.
     Route: 064
     Dates: end: 20090904
  3. STILNOCT [Suspect]
     Dosage: EXPOSURE THROUGHOUT THE WHOLE PREGNANCY.
     Route: 064
     Dates: end: 20090904
  4. ANAFRANIL [Suspect]
     Indication: DEPRESSION
     Dosage: EXPOSURE THROUGHOUT THE WHOLE PREGNANCY.
     Route: 064
     Dates: end: 20090904
  5. ANAFRANIL [Suspect]
     Indication: PANIC DISORDER
     Dosage: EXPOSURE THROUGHOUT THE WHOLE PREGNANCY.
     Route: 064
     Dates: end: 20090904
  6. ANAFRANIL [Suspect]
     Dosage: EXPOSURE THROUGHOUT THE WHOLE PREGNANCY.
     Route: 064
     Dates: end: 20090904
  7. LERGIGAN FORTE [Suspect]
     Indication: DEPRESSION
     Dosage: EXPOSURE THROUGHOUT THE WHOLE PREGNANCY.
     Route: 064
     Dates: end: 20090904
  8. LERGIGAN FORTE [Suspect]
     Indication: PANIC DISORDER
     Dosage: EXPOSURE THROUGHOUT THE WHOLE PREGNANCY.
     Route: 064
     Dates: end: 20090904
  9. LERGIGAN FORTE [Suspect]
     Dosage: EXPOSURE THROUGHOUT THE WHOLE PREGNANCY.
     Route: 064
     Dates: end: 20090904

REACTIONS (6)
  - BRADYCARDIA NEONATAL [None]
  - DRUG EXPOSURE DURING PREGNANCY [None]
  - INFANTILE APNOEIC ATTACK [None]
  - NEONATAL RESPIRATORY DISTRESS SYNDROME [None]
  - OXYGEN SATURATION DECREASED [None]
  - PREMATURE BABY [None]
